FAERS Safety Report 5484555-4 (Version None)
Quarter: 2007Q4

REPORT INFORMATION
  Report Type: 
  Country: None (occurrence: None)
  Receive Date: 20071012
  Receipt Date: 20070925
  Transmission Date: 20080405
  Serious: Yes (Other)
  Sender: FDA-Public Use
  Company Number: US-PFIZER INC-2007085139

PATIENT
  Age: 39 Year
  Sex: Female

DRUGS (3)
  1. ZYRTEC [Suspect]
  2. TOPAMAX [Suspect]
     Dosage: DAILY DOSE:400MG
  3. PAROXETINE [Suspect]

REACTIONS (2)
  - ABORTION SPONTANEOUS [None]
  - DRUG EXPOSURE DURING PREGNANCY [None]
